FAERS Safety Report 7939594-8 (Version None)
Quarter: 2011Q4

REPORT INFORMATION
  Report Type: 
  Country: None (occurrence: None)
  Receive Date: 20111125
  Receipt Date: 20110907
  Transmission Date: 20120403
  Serious: No
  Sender: FDA-Public Use
  Company Number: US-BAYER-2011-089324

PATIENT
  Sex: Male
  Weight: 78.005 kg

DRUGS (6)
  1. ANTIHYPERTENSIVES [Concomitant]
  2. ASPIRIN [Concomitant]
  3. CRESTOR [Concomitant]
  4. ALEVE (CAPLET) [Suspect]
     Indication: SLEEP DISORDER THERAPY
     Dosage: 1 DF, QD
  5. DAILY VITAMINS [Concomitant]
  6. HEART BURN MEDICIN [Concomitant]

REACTIONS (1)
  - NO ADVERSE EVENT [None]
